FAERS Safety Report 13894889 (Version 1)
Quarter: 2017Q3

REPORT INFORMATION
  Report Type: Spontaneous
  Country: US (occurrence: US)
  Receive Date: 20170817
  Receipt Date: 20170817
  Transmission Date: 20171127
  Serious: Yes (Other)
  Sender: FDA-Public Use
  Company Number: None

PATIENT
  Age: 64 Year
  Sex: Male
  Weight: 87 kg

DRUGS (14)
  1. MEMANTINE. [Suspect]
     Active Substance: MEMANTINE
     Indication: DEMENTIA ALZHEIMER^S TYPE
     Route: 048
     Dates: start: 20170511, end: 20170520
  2. LISINOPRIL. [Concomitant]
     Active Substance: LISINOPRIL
  3. SERTRALINE [Concomitant]
     Active Substance: SERTRALINE HYDROCHLORIDE
  4. TERAZOSIN [Concomitant]
     Active Substance: TERAZOSIN\TERAZOSIN HYDROCHLORIDE
  5. DONEPEZIL. [Concomitant]
     Active Substance: DONEPEZIL
  6. ATORVASTATIN [Concomitant]
     Active Substance: ATORVASTATIN
  7. FUROSEMIDE. [Concomitant]
     Active Substance: FUROSEMIDE
  8. RIVAROXABAN [Concomitant]
     Active Substance: RIVAROXABAN
  9. CLONAZEPAM. [Concomitant]
     Active Substance: CLONAZEPAM
  10. RISPERIDONE. [Concomitant]
     Active Substance: RISPERIDONE
  11. DENOSUMAB [Concomitant]
     Active Substance: DENOSUMAB
  12. METFORMIN [Concomitant]
     Active Substance: METFORMIN HYDROCHLORIDE
  13. MEMANTINE. [Suspect]
     Active Substance: MEMANTINE
     Indication: DEMENTIA
     Route: 048
     Dates: start: 20170511, end: 20170520
  14. FLUTICASONE. [Concomitant]
     Active Substance: FLUTICASONE

REACTIONS (1)
  - Rash pruritic [None]

NARRATIVE: CASE EVENT DATE: 20170520
